FAERS Safety Report 4329380-2 (Version None)
Quarter: 2004Q1

REPORT INFORMATION
  Report Type: 
  Country: None (occurrence: None)
  Receive Date: 20040331
  Receipt Date: 20040331
  Transmission Date: 20041129
  Serious: Yes (Hospitalization, Other)
  Sender: FDA-Public Use
  Company Number: None

PATIENT
  Age: 81 Year
  Sex: Female
  Weight: 76.2043 kg

DRUGS (6)
  1. BUPIVACAINE [Suspect]
     Indication: PAIN MANAGEMENT
     Dosage: 2 ML/HR WITH BOLUS Q 45'
     Route: 040
     Dates: start: 20040105, end: 20040113
  2. DEMEROL [Suspect]
     Dosage: OVER 8 DAY 400 CC TOTAL
     Dates: start: 20040105, end: 20040113
  3. METOPROLOL [Concomitant]
  4. MONOPRIL [Concomitant]
  5. LASIX [Concomitant]
  6. VIOXX [Concomitant]

REACTIONS (3)
  - LIVER FUNCTION TEST ABNORMAL [None]
  - MEDICAL DEVICE COMPLICATION [None]
  - PYREXIA [None]
